FAERS Safety Report 9682848 (Version 2)
Quarter: 2013Q4

REPORT INFORMATION
  Report Type: Report from Study
  Country: PH (occurrence: PH)
  Receive Date: 20131112
  Receipt Date: 20131115
  Transmission Date: 20140711
  Serious: Yes (Disabling, Other)
  Sender: FDA-Public Use
  Company Number: PHHY2013PH128504

PATIENT
  Age: 66 Year
  Sex: Female

DRUGS (2)
  1. TASIGNA [Suspect]
     Indication: CHRONIC MYELOID LEUKAEMIA
     Dosage: 600 MG, PER DAY
     Route: 048
     Dates: start: 20130916
  2. TASIGNA [Suspect]
     Dosage: 450 MG, PER DAY
     Route: 048
     Dates: end: 20131029

REACTIONS (6)
  - Rash maculo-papular [Recovered/Resolved]
  - Rash erythematous [Recovered/Resolved]
  - Skin exfoliation [Recovered/Resolved]
  - Skin hyperpigmentation [Recovered/Resolved]
  - Rash pruritic [Recovered/Resolved]
  - Skin hypertrophy [Recovered/Resolved]
